FAERS Safety Report 25145596 (Version 1)
Quarter: 2025Q2

REPORT INFORMATION
  Report Type: Spontaneous
  Country: BR (occurrence: BR)
  Receive Date: 20250401
  Receipt Date: 20250401
  Transmission Date: 20250717
  Serious: Yes (Other)
  Sender: GE HEALTHCARE
  Company Number: BR-GE HEALTHCARE-2025CSU003938

PATIENT
  Age: 35 Year
  Sex: Female

DRUGS (1)
  1. OMNISCAN [Suspect]
     Active Substance: GADODIAMIDE
     Indication: Magnetic resonance imaging pelvic
     Dates: start: 20250320, end: 20250320

REACTIONS (4)
  - Cough [Unknown]
  - Erythema [Unknown]
  - Dyspnoea [Unknown]
  - Rash [Unknown]

NARRATIVE: CASE EVENT DATE: 20250320
